FAERS Safety Report 11685085 (Version 9)
Quarter: 2017Q2

REPORT INFORMATION
  Report Type: Spontaneous
  Country: US (occurrence: US)
  Receive Date: 20151030
  Receipt Date: 20170531
  Transmission Date: 20170829
  Serious: No
  Sender: FDA-Public Use
  Company Number: PHEH2015US021780

PATIENT
  Sex: Female
  Weight: 64.4 kg

DRUGS (3)
  1. ONDANSETRON TEVA [Suspect]
     Active Substance: ONDANSETRON
     Indication: VOMITING IN PREGNANCY
     Dosage: 8 MG
     Route: 065
     Dates: start: 20100212, end: 20100318
  2. ZOFRAN [Suspect]
     Active Substance: ONDANSETRON HYDROCHLORIDE
     Indication: VOMITING IN PREGNANCY
     Dosage: PRN (AS NEEDED)
     Route: 048
  3. ZOFRAN [Suspect]
     Active Substance: ONDANSETRON HYDROCHLORIDE
     Indication: VOMITING IN PREGNANCY

REACTIONS (7)
  - Emotional distress [Unknown]
  - Depression [Unknown]
  - Pain [Unknown]
  - Injury [Unknown]
  - Product use in unapproved indication [Unknown]
  - Anxiety [Unknown]
  - Maternal exposure during pregnancy [Unknown]
